FAERS Safety Report 4740562-8 (Version None)
Quarter: 2005Q3

REPORT INFORMATION
  Report Type: 
  Country: None (occurrence: None)
  Receive Date: 20050810
  Receipt Date: 20050729
  Transmission Date: 20060218
  Serious: Yes (Other)
  Sender: FDA-Public Use
  Company Number: 2005AP04116

PATIENT
  Age: 33050 Day
  Sex: Female
  Weight: 71 kg

DRUGS (3)
  1. OMEPRAZOLE [Suspect]
     Dates: start: 20041215, end: 20050303
  2. ACTONEL [Suspect]
     Indication: BONE DISORDER
     Route: 048
     Dates: end: 20050503
  3. COVERSYL [Suspect]
     Indication: ESSENTIAL HYPERTENSION
     Route: 048
     Dates: start: 20050301, end: 20050503

REACTIONS (1)
  - RENAL FAILURE ACUTE [None]
